FAERS Safety Report 8153815-0 (Version None)
Quarter: 2012Q1

REPORT INFORMATION
  Report Type: 
  Country: None (occurrence: None)
  Receive Date: 20120221
  Receipt Date: 20120216
  Transmission Date: 20120608
  Serious: Yes (Disabling, Congenital Anomaly)
  Sender: FDA-Public Use
  Company Number: JP-GLAXOSMITHKLINE-B0782476A

PATIENT

DRUGS (1)
  1. ARIXTRA [Suspect]
     Indication: THROMBOSIS PROPHYLAXIS
     Dosage: 5MG PER DAY
     Route: 064
     Dates: start: 20110524, end: 20111229

REACTIONS (4)
  - SYNDACTYLY [None]
  - ADACTYLY [None]
  - BIRTH MARK [None]
  - FOETAL EXPOSURE DURING PREGNANCY [None]
